FAERS Safety Report 5476379-9 (Version None)
Quarter: 2007Q4

REPORT INFORMATION
  Report Type: 
  Country: None (occurrence: None)
  Receive Date: 20071003
  Receipt Date: 20070928
  Transmission Date: 20080405
  Serious: Yes (Death)
  Sender: FDA-Public Use
  Company Number: GB-ABBOTT-07P-167-0419003-00

PATIENT
  Age: 77 Year
  Sex: Male

DRUGS (1)
  1. ERYTHROMYCIN [Suspect]
     Indication: BURSITIS
     Dosage: NOT REPORTED

REACTIONS (1)
  - PSEUDOMEMBRANOUS COLITIS [None]
